FAERS Safety Report 7969299-9 (Version None)
Quarter: 2011Q4

REPORT INFORMATION
  Report Type: 
  Country: None (occurrence: None)
  Receive Date: 20111209
  Receipt Date: 20111206
  Transmission Date: 20120403
  Serious: Yes (Death)
  Sender: FDA-Public Use
  Company Number: US-ASTRAZENECA-2011SE64783

PATIENT
  Age: 60 Year
  Sex: Male

DRUGS (12)
  1. THIAMINE HCL [Concomitant]
  2. SEROQUEL [Suspect]
     Indication: SCHIZOPHRENIA
     Route: 048
  3. SEROQUEL [Suspect]
     Route: 048
     Dates: end: 20101216
  4. ZYPREXA [Suspect]
     Route: 065
     Dates: start: 20110804
  5. METOPROLOL TARTRATE [Concomitant]
  6. SOMA [Concomitant]
     Dosage: 1 350 MG TID PRN
  7. HYDROCODONE BITARTRATE AND ACETAMINOPHEN [Concomitant]
     Dosage: 10 325 - 1 TID PRN
  8. NORVASC [Concomitant]
  9. CYMBALTA [Concomitant]
  10. SEROQUEL [Suspect]
     Route: 048
     Dates: start: 20101216
  11. SEROQUEL [Suspect]
     Route: 048
     Dates: start: 20110922
  12. ZOCOR [Concomitant]

REACTIONS (3)
  - DEATH [None]
  - WEIGHT INCREASED [None]
  - DRUG DOSE OMISSION [None]
